FAERS Safety Report 9009871 (Version 2)
Quarter: 2013Q1

REPORT INFORMATION
  Report Type: Spontaneous
  Country: US (occurrence: US)
  Receive Date: 20130110
  Receipt Date: 20130304
  Transmission Date: 20140127
  Serious: Yes (Hospitalization, Other)
  Sender: FDA-Public Use
  Company Number: US-ASTELLAS-2013US000260

PATIENT
  Age: 88 Year
  Sex: Male

DRUGS (2)
  1. XTANDI [Suspect]
     Indication: BENIGN PROSTATIC HYPERPLASIA
     Dosage: 160 MG, UID/QD
     Route: 048
     Dates: start: 20121013
  2. BLOOD PRESSURE MEDICATIONS [Suspect]
     Indication: BLOOD PRESSURE
     Dosage: UNK
     Route: 065

REACTIONS (9)
  - Off label use [Unknown]
  - Bone cancer [Unknown]
  - Hypotension [Unknown]
  - Excoriation [Unknown]
  - Neck injury [Unknown]
  - Back injury [Unknown]
  - Fall [Unknown]
  - Prostatic specific antigen increased [Unknown]
  - Pain in extremity [Recovered/Resolved]
